FAERS Safety Report 5106169-8 (Version None)
Quarter: 2006Q3

REPORT INFORMATION
  Report Type: 
  Country: None (occurrence: None)
  Receive Date: 20060912
  Receipt Date: 20060828
  Transmission Date: 20061208
  Serious: Yes (Hospitalization)
  Sender: FDA-Public Use
  Company Number: JP200601005207

PATIENT
  Age: 46 Year
  Sex: Male
  Weight: 39.2 kg

DRUGS (9)
  1. ZYPREXA [Suspect]
     Indication: SCHIZOTYPAL PERSONALITY DISORDER
     Dosage: SEE IMAGE, ORAL
     Route: 048
     Dates: start: 20060106, end: 20060109
  2. ZYPREXA [Suspect]
     Indication: SCHIZOTYPAL PERSONALITY DISORDER
     Dosage: SEE IMAGE, ORAL
     Route: 048
     Dates: start: 20060110, end: 20060116
  3. ROHYPNOL (FLUNITRAZEPAM) [Concomitant]
  4. PAXIL [Concomitant]
  5. ALPRAZOLAM [Concomitant]
  6. SHINLUCK (SODIUM PICOSULFATE) [Concomitant]
  7. SENNOSIDE A+B (SENNOSIDE A+B) [Concomitant]
  8. HIBERNA (PROMETHAZINE  HYDROCHLORIDE) [Concomitant]
  9. VOLTAREN [Concomitant]

REACTIONS (8)
  - C-REACTIVE PROTEIN INCREASED [None]
  - DRUG HYPERSENSITIVITY [None]
  - LYMPHOCYTE STIMULATION TEST POSITIVE [None]
  - NASOPHARYNGITIS [None]
  - ORAL INTAKE REDUCED [None]
  - PANCYTOPENIA [None]
  - PYREXIA [None]
  - UPPER RESPIRATORY TRACT INFECTION [None]
